FAERS Safety Report 5923348-8 (Version None)
Quarter: 2008Q4

REPORT INFORMATION
  Report Type: 
  Country: None (occurrence: None)
  Receive Date: 20081020
  Receipt Date: 20081017
  Transmission Date: 20090506
  Serious: Yes (Hospitalization)
  Sender: FDA-Public Use
  Company Number: JP-BRISTOL-MYERS SQUIBB COMPANY-14337745

PATIENT
  Age: 80 Year
  Sex: Male

DRUGS (7)
  1. GATIFLOXACIN [Suspect]
     Indication: URINARY TRACT INFECTION
     Route: 048
     Dates: start: 20080829, end: 20080831
  2. AMARYL [Concomitant]
     Route: 048
     Dates: start: 20080118, end: 20080831
  3. RENIVEZE [Concomitant]
     Route: 048
     Dates: start: 20051006, end: 20080831
  4. TAMSULOSIN HCL [Concomitant]
     Route: 048
     Dates: start: 20051006, end: 20080831
  5. DIGESTIVE ENZYME [Concomitant]
     Route: 048
     Dates: start: 20070706, end: 20080831
  6. BROTIZOLAM [Concomitant]
     Route: 048
     Dates: start: 20051006, end: 20080831
  7. RASENAZOLIN [Concomitant]
     Route: 048
     Dates: start: 20080829, end: 20080831

REACTIONS (1)
  - HYPOGLYCAEMIA [None]
